FAERS Safety Report 9596255 (Version 2)
Quarter: 2013Q4

REPORT INFORMATION
  Report Type: Report from Study
  Country: DE (occurrence: DE)
  Receive Date: 20131004
  Receipt Date: 20131004
  Transmission Date: 20140711
  Serious: Yes (Hospitalization)
  Sender: FDA-Public Use
  Company Number: DE-ABBVIE-12P-062-1018009-00

PATIENT
  Age: 70 Year
  Sex: Female
  Weight: 80 kg

DRUGS (1)
  1. HUMIRA [Suspect]
     Indication: PSORIASIS
     Route: 050
     Dates: end: 20121129

REACTIONS (3)
  - Intervertebral disc protrusion [Not Recovered/Not Resolved]
  - Lumbar spinal stenosis [Unknown]
  - Intervertebral disc protrusion [Unknown]
